FAERS Safety Report 5939679-1 (Version None)
Quarter: 2008Q4

REPORT INFORMATION
  Report Type: 
  Country: None (occurrence: None)
  Receive Date: 20081030
  Receipt Date: 20081030
  Transmission Date: 20090506
  Serious: Yes (Other)
  Sender: FDA-Public Use
  Company Number: None

PATIENT
  Age: 53 Year
  Sex: Female
  Weight: 81.6475 kg

DRUGS (2)
  1. PAXIL CR [Suspect]
     Indication: ANXIETY
     Dosage: 1 TWICE DAILY
     Dates: start: 20030101, end: 20081031
  2. PAXIL CR [Suspect]
     Indication: PANIC REACTION
     Dosage: 1 TWICE DAILY
     Dates: start: 20030101, end: 20081031

REACTIONS (2)
  - ANXIETY [None]
  - PRURITUS [None]
